FAERS Safety Report 6585569-3 (Version None)
Quarter: 2010Q1

REPORT INFORMATION
  Report Type: 
  Country: None (occurrence: None)
  Receive Date: 20100217
  Receipt Date: 20100205
  Transmission Date: 20100710
  Serious: Yes (Death, Hospitalization)
  Sender: FDA-Public Use
  Company Number: GXKR2010FR01557

PATIENT
  Age: 34 Year
  Sex: Female

DRUGS (1)
  1. MINOCYCLINE HCL [Suspect]
     Indication: GENITAL INFECTION
     Route: 065

REACTIONS (15)
  - ARTHRALGIA [None]
  - CARDIAC OPERATION [None]
  - CARDIOGENIC SHOCK [None]
  - CYTOLYTIC HEPATITIS [None]
  - DRUG RASH WITH EOSINOPHILIA AND SYSTEMIC SYMPTOMS [None]
  - DYSPNOEA [None]
  - EOSINOPHILIC MYOCARDITIS [None]
  - FACE OEDEMA [None]
  - HYPOTENSION [None]
  - LIFE SUPPORT [None]
  - LYMPHADENOPATHY [None]
  - OROPHARYNGEAL PAIN [None]
  - PYREXIA [None]
  - RASH MACULO-PAPULAR [None]
  - TACHYCARDIA [None]
